FAERS Safety Report 13150416 (Version 2)
Quarter: 2017Q1

REPORT INFORMATION
  Report Type: Spontaneous
  Country: US (occurrence: US)
  Receive Date: 20170125
  Receipt Date: 20170331
  Transmission Date: 20170428
  Serious: No
  Sender: FDA-Public Use
  Company Number: US-PFIZER INC-2017028507

PATIENT
  Age: 60 Year
  Sex: Female
  Weight: 73 kg

DRUGS (11)
  1. HYDROCODONE [Concomitant]
     Active Substance: HYDROCODONE
     Indication: PAIN
     Dosage: UNK UNK, AS NEEDED, 10/325
     Route: 048
  2. AROMASIN [Suspect]
     Active Substance: EXEMESTANE
     Indication: BREAST CANCER
     Dosage: 25 MG, 1X/DAY
     Route: 048
     Dates: start: 20170111, end: 20170117
  3. PANTOPRAZOLE [Concomitant]
     Active Substance: PANTOPRAZOLE SODIUM
     Indication: HIATUS HERNIA
     Dosage: 40 MG, 1X/DAY
     Route: 048
  4. GABAPENTIN. [Concomitant]
     Active Substance: GABAPENTIN
     Indication: BACK PAIN
     Dosage: 1200 MG, 3X/DAY, 4 IN THE MORNING, 4 IN THE AFTERNOON, AND 4 AT NIGHT
  5. ALPRAZOLAM. [Concomitant]
     Active Substance: ALPRAZOLAM
     Indication: PANIC ATTACK
     Dosage: 0.5 MG, 2X/DAY
     Route: 048
  6. ATORVASTATIN [Concomitant]
     Active Substance: ATORVASTATIN
     Indication: BLOOD CHOLESTEROL ABNORMAL
     Dosage: 80 MG, 1X/DAY
     Route: 048
  7. SPIRIVA [Concomitant]
     Active Substance: TIOTROPIUM BROMIDE MONOHYDRATE
     Indication: CHRONIC OBSTRUCTIVE PULMONARY DISEASE
     Dosage: 2.5 UG, UNK, 2 PUFFS DAILY
     Route: 055
  8. HYDROCHLORZIDE [Concomitant]
     Active Substance: HYDROCHLOROTHIAZIDE
     Indication: BLOOD PRESSURE ABNORMAL
     Dosage: 25 MG, 1X/DAY
     Route: 048
     Dates: start: 2010
  9. IPRATROPIUM BROMIDE. [Concomitant]
     Active Substance: IPRATROPIUM BROMIDE
     Indication: CHRONIC OBSTRUCTIVE PULMONARY DISEASE
     Dosage: UNK, 1 PUFF ONCE OR TWICE A DAY
     Route: 055
  10. AROMASIN [Suspect]
     Active Substance: EXEMESTANE
     Dosage: UNK
  11. ONDANSETRON [Concomitant]
     Active Substance: ONDANSETRON
     Indication: NAUSEA
     Dosage: 8 MG, AS NEEDED
     Route: 048
     Dates: start: 201604

REACTIONS (4)
  - Pruritus [Recovered/Resolved]
  - Headache [Recovered/Resolved]
  - Urticaria [Recovered/Resolved]
  - Tremor [Recovered/Resolved]

NARRATIVE: CASE EVENT DATE: 20170113
